FAERS Safety Report 6918398-9 (Version None)
Quarter: 2010Q3

REPORT INFORMATION
  Report Type: 
  Country: None (occurrence: None)
  Receive Date: 20100811
  Receipt Date: 20100804
  Transmission Date: 20110219
  Serious: No
  Sender: FDA-Public Use
  Company Number: US-BIOGENIDEC-2010BI027188

PATIENT
  Age: 34 Year
  Sex: Female

DRUGS (3)
  1. TYSABRI [Suspect]
     Indication: MULTIPLE SCLEROSIS
     Route: 042
     Dates: start: 20091217
  2. AVONEX [Concomitant]
     Indication: MULTIPLE SCLEROSIS
     Route: 030
     Dates: start: 20030208, end: 20030801
  3. AVONEX [Concomitant]
     Route: 030
     Dates: start: 20030801

REACTIONS (2)
  - MUSCLE SPASMS [None]
  - MUSCULAR WEAKNESS [None]
